FAERS Safety Report 17000043 (Version 2)
Quarter: 2019Q4

REPORT INFORMATION
  Report Type: Spontaneous
  Country: US (occurrence: US)
  Receive Date: 20191106
  Receipt Date: 20191216
  Transmission Date: 20200122
  Serious: Yes (Other)
  Sender: FDA-Public Use
  Company Number: US-SHIRE-US201934461

PATIENT
  Sex: Female

DRUGS (2)
  1. XIIDRA [Suspect]
     Active Substance: LIFITEGRAST
     Indication: DRY EYE
     Dosage: 1 DROP IN EACH EYE, 2X/DAY:BID
     Route: 047
  2. XIIDRA [Suspect]
     Active Substance: LIFITEGRAST
     Dosage: 1 DROP IN EACH EYE, 1X/DAY:QD
     Route: 047

REACTIONS (5)
  - Eye pruritus [Unknown]
  - Sjogren^s syndrome [Unknown]
  - Vision blurred [Unknown]
  - Eye irritation [Unknown]
  - Lacrimation decreased [Unknown]
